FAERS Safety Report 6705711-0 (Version None)
Quarter: 2010Q2

REPORT INFORMATION
  Report Type: 
  Country: None (occurrence: None)
  Receive Date: 20100503
  Receipt Date: 20100420
  Transmission Date: 20101027
  Serious: Yes (Hospitalization, Other)
  Sender: FDA-Public Use
  Company Number: US-BAYER-201011743NA

PATIENT
  Age: 24 Year
  Sex: Female
  Weight: 73 kg

DRUGS (13)
  1. YAZ [Suspect]
     Indication: ORAL CONTRACEPTION
     Route: 048
     Dates: start: 20071120, end: 20090501
  2. AZITHROMYCIN [Concomitant]
  3. PULMICORT [Concomitant]
  4. NAPROXEN [Concomitant]
  5. ZYBAN [Concomitant]
  6. PHENERGAN [Concomitant]
  7. FIORICET [Concomitant]
  8. NATACHEW [Concomitant]
  9. TAMIFLU [Concomitant]
     Indication: VIRAL INFECTION
  10. TYLENOL-500 [Concomitant]
     Indication: VIRAL INFECTION
  11. ROBITUSSIN [Concomitant]
     Indication: VIRAL INFECTION
  12. AMOXICILLIN [Concomitant]
     Indication: VIRAL INFECTION
  13. PANTOPRAZOLE [Concomitant]

REACTIONS (8)
  - ABDOMINAL PAIN UPPER [None]
  - ASTHENIA [None]
  - CHOLECYSTITIS [None]
  - CHOLELITHIASIS [None]
  - NAUSEA [None]
  - PANCREATITIS [None]
  - PYREXIA [None]
  - VOMITING [None]
